FAERS Safety Report 7464965-6 (Version None)
Quarter: 2011Q2

REPORT INFORMATION
  Report Type: 
  Country: None (occurrence: None)
  Receive Date: 20110509
  Receipt Date: 20110427
  Transmission Date: 20111010
  Serious: Yes (Hospitalization)
  Sender: FDA-Public Use
  Company Number: US-JNJFOC-20110500131

PATIENT
  Sex: Female
  Weight: 76.2 kg

DRUGS (7)
  1. PROTONIX [Concomitant]
     Indication: GASTRIC DISORDER
     Route: 048
  2. NORCO [Concomitant]
     Indication: BREAKTHROUGH PAIN
     Route: 048
  3. FENTANYL [Suspect]
     Indication: INTERVERTEBRAL DISC PROTRUSION
     Route: 062
  4. FENTANYL [Suspect]
     Indication: FIBROMYALGIA
     Route: 062
  5. CYMBALTA [Concomitant]
     Indication: DEPRESSION
     Route: 048
  6. FENTANYL [Suspect]
     Indication: RHEUMATOID ARTHRITIS
     Route: 062
  7. FENTANYL [Suspect]
     Route: 062

REACTIONS (4)
  - OVARIAN CYST [None]
  - SKIN HAEMORRHAGE [None]
  - WRONG TECHNIQUE IN DRUG USAGE PROCESS [None]
  - UTERINE LEIOMYOMA [None]
